FAERS Safety Report 14924050 (Version 1)
Quarter: 2018Q2

REPORT INFORMATION
  Report Type: Report from Study
  Country: US (occurrence: US)
  Receive Date: 20180522
  Receipt Date: 20180522
  Transmission Date: 20180711
  Serious: Yes (Hospitalization)
  Sender: FDA-Public Use
  Company Number: US-EISAI MEDICAL RESEARCH-EC-2018-037425

PATIENT
  Age: 37 Year
  Sex: Female
  Weight: 60.32 kg

DRUGS (5)
  1. BENADRYL [Concomitant]
     Active Substance: DIPHENHYDRAMINE HYDROCHLORIDE
  2. LEVOTHYROXINE. [Concomitant]
     Active Substance: LEVOTHYROXINE
  3. LENVIMA [Suspect]
     Active Substance: LENVATINIB
     Indication: THYROID CANCER
     Route: 048
     Dates: start: 20180321
  4. CALCIUM [Concomitant]
     Active Substance: CALCIUM
  5. UNKNOWN STERIOD [Concomitant]
     Active Substance: UNSPECIFIED INGREDIENT

REACTIONS (15)
  - Back pain [Not Recovered/Not Resolved]
  - Swelling face [Not Recovered/Not Resolved]
  - Epistaxis [Unknown]
  - Ear pain [Unknown]
  - Dysphonia [Unknown]
  - Migraine [Unknown]
  - Oropharyngeal pain [Unknown]
  - Rash [Unknown]
  - Musculoskeletal chest pain [Unknown]
  - Burning sensation [Not Recovered/Not Resolved]
  - Swelling [Not Recovered/Not Resolved]
  - Hypertension [Unknown]
  - Feeling hot [Unknown]
  - Loose tooth [Unknown]
  - Dizziness [Unknown]

NARRATIVE: CASE EVENT DATE: 2018
